FAERS Safety Report 8573065 (Version 3)
Quarter: 2013Q3

REPORT INFORMATION
  Report Type: Spontaneous
  Country: CA (occurrence: CA)
  Receive Date: 20120522
  Receipt Date: 20130820
  Transmission Date: 20140515
  Serious: Yes (Hospitalization)
  Sender: FDA-Public Use
  Company Number: CA-JNJFOC-20120510611

PATIENT
  Age: 17 Year
  Sex: Female
  Weight: 59.88 kg

DRUGS (5)
  1. REMICADE [Suspect]
     Indication: CROHN^S DISEASE
     Route: 042
     Dates: start: 201107
  2. REMICADE [Suspect]
     Indication: CROHN^S DISEASE
     Route: 042
     Dates: start: 201105
  3. REMICADE [Suspect]
     Indication: CROHN^S DISEASE
     Route: 042
     Dates: start: 2012
  4. PREDNISONE [Concomitant]
     Indication: CROHN^S DISEASE
     Route: 065
  5. ALL OTHER THERAPEUTICS [Concomitant]
     Route: 065

REACTIONS (2)
  - Crohn^s disease [Unknown]
  - Post procedural infection [Unknown]
